FAERS Safety Report 15712670 (Version 1)
Quarter: 2018Q4

REPORT INFORMATION
  Report Type: Spontaneous
  Country: US (occurrence: US)
  Receive Date: 20181128
  Receipt Date: 20181128
  Transmission Date: 20190205
  Serious: Yes (Hospitalization)
  Sender: FDA-Public Use
  Company Number: None

PATIENT
  Age: 64 Year
  Sex: Male
  Weight: 68.04 kg

DRUGS (22)
  1. CARBOXYMETHYLCELLULOSE SODIUM. [Concomitant]
     Active Substance: CARBOXYMETHYLCELLULOSE SODIUM
  2. CHOLECALCIFEROL [Concomitant]
     Active Substance: CHOLECALCIFEROL
  3. CIPROFLOXACIN. [Concomitant]
     Active Substance: CIPROFLOXACIN
  4. CLOPIDOGREL [Concomitant]
     Active Substance: CLOPIDOGREL BISULFATE
  5. IPRATROPIUM-ALBUTEROL [Concomitant]
     Active Substance: ALBUTEROL\IPRATROPIUM
  6. DAPTOMYCIN. [Suspect]
     Active Substance: DAPTOMYCIN
     Indication: OSTEOMYELITIS
     Route: 042
     Dates: start: 20180704, end: 20180716
  7. FERROUS SULFATE. [Concomitant]
     Active Substance: FERROUS SULFATE
  8. HEPARIN [Concomitant]
     Active Substance: HEPARIN SODIUM
  9. CASPOFUNGIN [Concomitant]
     Active Substance: CASPOFUNGIN
  10. MIRTEZEPINE [Concomitant]
  11. SODIUM CHLORIDE. [Concomitant]
     Active Substance: SODIUM CHLORIDE
  12. NO DRUG NAME [Concomitant]
  13. METOPROLOL TARTRATE. [Concomitant]
     Active Substance: METOPROLOL TARTRATE
  14. ONDANSETRON [Concomitant]
     Active Substance: ONDANSETRON
  15. TRAMADOL. [Concomitant]
     Active Substance: TRAMADOL
  16. URSODIOL. [Concomitant]
     Active Substance: URSODIOL
  17. TYLENOL [Concomitant]
     Active Substance: ACETAMINOPHEN
  18. ASPIRIN. [Concomitant]
     Active Substance: ASPIRIN
  19. MULTIVITAMIN [Concomitant]
     Active Substance: VITAMINS
  20. TACROLIMUS. [Concomitant]
     Active Substance: TACROLIMUS
  21. METFORMIN [Concomitant]
     Active Substance: METFORMIN HYDROCHLORIDE
  22. OMEPRAZOLE. [Concomitant]
     Active Substance: OMEPRAZOLE

REACTIONS (1)
  - Rhabdomyolysis [None]

NARRATIVE: CASE EVENT DATE: 20180716
